FAERS Safety Report 9474712 (Version 1)
Quarter: 2013Q3

REPORT INFORMATION
  Report Type: Spontaneous
  Country: GB (occurrence: GB)
  Receive Date: 20130823
  Receipt Date: 20130823
  Transmission Date: 20140515
  Serious: Yes (Other)
  Sender: FDA-Public Use
  Company Number: GB-WATSON-2013-14926

PATIENT
  Age: 57 Year
  Sex: Female

DRUGS (3)
  1. TOPIRAMATE (UNKNOWN) [Suspect]
     Indication: NEURALGIA
     Dosage: 25 MG, BID
     Route: 048
     Dates: start: 20121217, end: 20121227
  2. CO-CODAMOL [Concomitant]
     Indication: NEURALGIA
     Dosage: 8 DF, UNK
     Route: 065
  3. DOSULEPIN [Concomitant]
     Indication: NEURALGIA
     Dosage: 75 MG, UNKNOWN
     Route: 065

REACTIONS (3)
  - Dysarthria [Recovered/Resolved]
  - Alexia [Recovered/Resolved]
  - Speech disorder [Recovered/Resolved]
